FAERS Safety Report 24351222 (Version 1)
Quarter: 2024Q3

REPORT INFORMATION
  Report Type: Report from Study
  Country: IT (occurrence: IT)
  Receive Date: 20240923
  Receipt Date: 20240923
  Transmission Date: 20241016
  Serious: No
  Sender: ROCHE
  Company Number: IT-ROCHE-2220357

PATIENT
  Age: 57 Year
  Sex: Female
  Weight: 61.0 kg

DRUGS (18)
  1. TRASTUZUMAB [Suspect]
     Active Substance: TRASTUZUMAB
     Indication: Breast cancer metastatic
     Dosage: MOST RECENT DOSE PRIOR TO THE EVENT: 13/JAN/2018.
     Route: 042
     Dates: start: 20171223, end: 20171223
  2. PERTUZUMAB [Suspect]
     Active Substance: PERTUZUMAB
     Indication: Breast cancer metastatic
     Dosage: MOST RECENT DOSE PRIOR TO THE EVENT: 13/JAN/2018.
     Route: 042
     Dates: start: 20171223, end: 20171223
  3. PACLITAXEL [Suspect]
     Active Substance: PACLITAXEL
     Indication: Breast cancer metastatic
     Dosage: MOST RECENT DOSE PRIOR TO THE EVENT: 03/FEB/2018.
     Route: 042
     Dates: start: 20171223, end: 20171223
  4. TRIMETON [Concomitant]
     Active Substance: CHLORPHENIRAMINE MALEATE
     Dosage: ONGOING = CHECKED
     Dates: start: 20180113
  5. OMEPRAZOLE [Concomitant]
     Active Substance: OMEPRAZOLE
     Dosage: ONGOING = CHECKED
     Dates: start: 20191029
  6. LORMETAZEPAM [Concomitant]
     Active Substance: LORMETAZEPAM
     Dosage: ONGOING = CHECKED
     Dates: start: 20191119
  7. MELATONIN [Concomitant]
     Active Substance: MELATONIN
     Dosage: ONGOING = CHECKED
     Dates: start: 20200121
  8. PREDNISONE [Concomitant]
     Active Substance: PREDNISONE
     Dosage: ONGOING = NOT CHECKED
     Dates: start: 20220423, end: 20220503
  9. PREDNISONE [Concomitant]
     Active Substance: PREDNISONE
     Dosage: ONGOING = NOT CHECKED
     Dates: start: 20220503, end: 20220601
  10. PREDNISONE [Concomitant]
     Active Substance: PREDNISONE
     Dosage: ONGOING = CHECKED
     Dates: start: 20220601
  11. RIOPAN (ITALY) [Concomitant]
     Dosage: ONGOING = CHECKED
     Dates: start: 20180112
  12. TRIMEBUTINE MALEATE [Concomitant]
     Active Substance: TRIMEBUTINE MALEATE
     Dosage: ONGOING = CHECKED
     Dates: start: 20180112, end: 20190128
  13. RANITIDINE [Concomitant]
     Active Substance: RANITIDINE
     Dosage: ONGOING = NOT CHECKED
     Dates: start: 20180112, end: 20181008
  14. ZOLPIDEM [Concomitant]
     Active Substance: ZOLPIDEM TARTRATE
     Dates: start: 20180112, end: 20190917
  15. DECADRON [Concomitant]
     Active Substance: DEXAMETHASONE
     Dosage: ONGOING = NOT CHECKED
     Dates: start: 20180113, end: 20180829
  16. ZANTAC [Concomitant]
     Active Substance: RANITIDINE HYDROCHLORIDE
     Dosage: ONGOING = NOT CHECKED
     Dates: start: 20180113, end: 20180829
  17. LEVOSULPIRIDE [Concomitant]
     Active Substance: LEVOSULPIRIDE
     Indication: Abdominal pain upper
     Dates: start: 20180227, end: 20190128
  18. RANITIDINE [Concomitant]
     Active Substance: RANITIDINE
     Dosage: ONGOING = NOT CHECKED
     Dates: start: 20180112, end: 20181008

REACTIONS (1)
  - Thrombocytopenia [Not Recovered/Not Resolved]

NARRATIVE: CASE EVENT DATE: 20180220
